FAERS Safety Report 5847810-1 (Version None)
Quarter: 2008Q3

REPORT INFORMATION
  Report Type: 
  Country: None (occurrence: None)
  Receive Date: 20080815
  Receipt Date: 20080815
  Transmission Date: 20090109
  Serious: Yes (Death, Hospitalization)
  Sender: FDA-Public Use
  Company Number: None

PATIENT
  Sex: Male
  Weight: 72.5755 kg

DRUGS (1)
  1. DIGITEK -ACTAVIS TOTOWA SOLD BY MYLAN PHARMACCUTICALS UNDER [Suspect]
     Indication: CARDIAC DISORDER
     Dates: start: 20071201, end: 20080301

REACTIONS (22)
  - ASTHENIA [None]
  - BACK INJURY [None]
  - CHEST PAIN [None]
  - CLAVICLE FRACTURE [None]
  - CONCUSSION [None]
  - CONFUSIONAL STATE [None]
  - DISORIENTATION [None]
  - DIZZINESS [None]
  - FALL [None]
  - FEELING ABNORMAL [None]
  - GASTRIC DISORDER [None]
  - HEPATIC ENZYME INCREASED [None]
  - JOINT INJURY [None]
  - LIMB INJURY [None]
  - LIVER DISORDER [None]
  - MUSCULAR WEAKNESS [None]
  - PAIN [None]
  - PHARMACEUTICAL PRODUCT COMPLAINT [None]
  - SINUS ARRHYTHMIA [None]
  - SKIN LACERATION [None]
  - SYNCOPE [None]
  - VISUAL ACUITY REDUCED [None]
